FAERS Safety Report 20314934 (Version 1)
Quarter: 2022Q1

REPORT INFORMATION
  Report Type: Spontaneous
  Country: US (occurrence: None)
  Receive Date: 20220110
  Receipt Date: 20220110
  Transmission Date: 20220423
  Serious: No
  Sender: FDA-Public Use
  Company Number: US-ROCHE-2941410

PATIENT

DRUGS (1)
  1. RITUXAN [Suspect]
     Active Substance: RITUXIMAB
     Indication: Rheumatoid arthritis
     Dosage: 2 1000 MG DOSES OF RITUXAN, 2 WEEKS APART, 6 WEEKS AGO
     Route: 065

REACTIONS (1)
  - Therapy non-responder [Unknown]
